FAERS Safety Report 20746086 (Version 1)
Quarter: 2022Q2

REPORT INFORMATION
  Report Type: Report from Study
  Country: US (occurrence: US)
  Receive Date: 20220425
  Receipt Date: 20220425
  Transmission Date: 20220720
  Serious: No
  Sender: FDA-Public Use
  Company Number: US-MIRM-000323

PATIENT
  Sex: Female

DRUGS (8)
  1. LIVMARLI [Suspect]
     Active Substance: MARALIXIBAT CHLORIDE
     Indication: Alagille syndrome
     Route: 048
     Dates: start: 20220228
  2. LIVMARLI [Suspect]
     Active Substance: MARALIXIBAT CHLORIDE
     Indication: Alagille syndrome
     Route: 048
  3. 1782816 (GLOBALC3Sep19): Replexta NX Wafers [Concomitant]
     Indication: Product used for unknown indication
  4. 1328878 (GLOBALC3Sep19): Vitamin E [Concomitant]
     Indication: Product used for unknown indication
     Route: 048
  5. 4323134 (GLOBALC3Sep19): DEKAs Plus [Concomitant]
     Indication: Product used for unknown indication
     Route: 048
  6. 3118011 (GLOBALC3Sep19): Naltrexone tablets [Concomitant]
     Indication: Product used for unknown indication
     Dosage: DOSE: 0.5
     Route: 048
  7. 1328777 (GLOBALC3Sep19): Ursodiol [Concomitant]
     Indication: Product used for unknown indication
     Route: 048
  8. 1234868 (GLOBALC3Sep19): Enulose [Concomitant]
     Indication: Product used for unknown indication
     Route: 048

REACTIONS (3)
  - Constipation [Unknown]
  - Abdominal pain upper [Unknown]
  - Diarrhoea [Recovering/Resolving]

NARRATIVE: CASE EVENT DATE: 20220101
